FAERS Safety Report 11916497 (Version 3)
Quarter: 2016Q1

REPORT INFORMATION
  Report Type: Report from Study
  Country: KR (occurrence: KR)
  Receive Date: 20160114
  Receipt Date: 20160209
  Transmission Date: 20160526
  Serious: Yes (Hospitalization)
  Sender: FDA-Public Use
  Company Number: KR-CONCORDIA LABORATORIES INC.-PIN-2015-00050

PATIENT
  Age: 55 Year
  Sex: Male

DRUGS (81)
  1. PHOTOFRIN [Suspect]
     Active Substance: PORFIMER SODIUM
     Indication: CHOLANGIOCARCINOMA
     Dates: start: 20150909, end: 20150909
  2. CISPLATIN. [Suspect]
     Active Substance: CISPLATIN
     Indication: CHOLANGIOCARCINOMA
     Route: 042
     Dates: start: 20151001, end: 20151001
  3. TARGIN [Concomitant]
     Active Substance: NALOXONE HYDROCHLORIDE\OXYCODONE HYDROCHLORIDE
     Indication: DISEASE COMPLICATION
     Route: 048
     Dates: start: 20151022, end: 20151022
  4. TARGIN [Concomitant]
     Active Substance: NALOXONE HYDROCHLORIDE\OXYCODONE HYDROCHLORIDE
     Route: 065
  5. MYPOL [Concomitant]
     Route: 048
     Dates: start: 20151002, end: 20151002
  6. ENCOVER [Concomitant]
     Route: 048
     Dates: start: 20151023, end: 20151105
  7. MEGACE F [Concomitant]
     Indication: PROPHYLAXIS
     Route: 048
     Dates: start: 20150915, end: 20151020
  8. XYZAL [Concomitant]
     Active Substance: LEVOCETIRIZINE DIHYDROCHLORIDE
     Route: 048
     Dates: start: 20151022, end: 20151028
  9. ONSERAN [Concomitant]
     Indication: NAUSEA
     Route: 048
     Dates: start: 20151004, end: 20151006
  10. OXYCODONE HYDROCHLORIDE. [Concomitant]
     Active Substance: OXYCODONE HYDROCHLORIDE
     Indication: DISEASE COMPLICATION
     Route: 048
     Dates: start: 20150923, end: 20150923
  11. OXYCODONE HYDROCHLORIDE. [Concomitant]
     Active Substance: OXYCODONE HYDROCHLORIDE
     Route: 048
     Dates: start: 20150925, end: 20150926
  12. OXYCODONE HYDROCHLORIDE. [Concomitant]
     Active Substance: OXYCODONE HYDROCHLORIDE
     Route: 048
     Dates: start: 20151025, end: 20151025
  13. NORMAL SALINE [Concomitant]
     Active Substance: SODIUM CHLORIDE
     Route: 042
     Dates: start: 20151004, end: 20151004
  14. GODEX [Concomitant]
     Route: 048
     Dates: start: 20151026
  15. NEXIUM [Concomitant]
     Active Substance: ESOMEPRAZOLE MAGNESIUM
     Indication: NAUSEA
     Route: 042
     Dates: start: 20151004, end: 20151004
  16. SANCUSO [Concomitant]
     Active Substance: GRANISETRON
     Route: 065
     Dates: start: 20151027, end: 20151027
  17. PANTOLOC [Concomitant]
     Active Substance: PANTOPRAZOLE SODIUM
     Indication: NAUSEA
     Route: 048
     Dates: start: 20151004, end: 20151010
  18. ADELAVIN NO.9 [Concomitant]
     Indication: DISEASE COMPLICATION
     Route: 042
     Dates: start: 20150923, end: 20151002
  19. MUCOSTA [Concomitant]
     Active Substance: REBAMIPIDE
     Indication: PRODUCT USED FOR UNKNOWN INDICATION
     Route: 048
     Dates: start: 20151022
  20. MUCOSTA [Concomitant]
     Active Substance: REBAMIPIDE
     Indication: PROPHYLAXIS
     Route: 048
     Dates: start: 20150916, end: 20151020
  21. MEPERIDINE [Concomitant]
     Active Substance: MEPERIDINE
     Indication: CHOLANGITIS
     Route: 030
     Dates: start: 20150920, end: 20150920
  22. MEROPEN [Concomitant]
     Active Substance: MEROPENEM
     Route: 042
     Dates: start: 20150925, end: 20150930
  23. NORMAL SALINE [Concomitant]
     Active Substance: SODIUM CHLORIDE
     Route: 042
     Dates: start: 20151001, end: 20151001
  24. NORMAL SALINE [Concomitant]
     Active Substance: SODIUM CHLORIDE
     Route: 042
     Dates: start: 20151020, end: 20151024
  25. GODEX [Concomitant]
     Route: 048
     Dates: start: 20151025, end: 20151025
  26. AMIKACIN SULFATE. [Concomitant]
     Active Substance: AMIKACIN SULFATE
     Indication: CHOLANGITIS
     Route: 042
     Dates: start: 20150920, end: 20150923
  27. TRESTAN [Concomitant]
     Indication: PRODUCT USED FOR UNKNOWN INDICATION
     Route: 048
     Dates: start: 20150917, end: 20150923
  28. OXYCODONE HYDROCHLORIDE. [Concomitant]
     Active Substance: OXYCODONE HYDROCHLORIDE
     Route: 048
     Dates: start: 20150924, end: 20150924
  29. NORMAL SALINE [Concomitant]
     Active Substance: SODIUM CHLORIDE
     Route: 042
     Dates: start: 20151004, end: 20151004
  30. NORMAL SALINE [Concomitant]
     Active Substance: SODIUM CHLORIDE
     Route: 042
     Dates: start: 20151010, end: 20151010
  31. GEMCITABINE [Suspect]
     Active Substance: GEMCITABINE\GEMCITABINE HYDROCHLORIDE
     Route: 065
     Dates: start: 20151010, end: 20151010
  32. TARGIN [Concomitant]
     Active Substance: NALOXONE HYDROCHLORIDE\OXYCODONE HYDROCHLORIDE
     Route: 048
     Dates: start: 20150926, end: 20151020
  33. MYPOL [Concomitant]
     Route: 048
     Dates: start: 20151027, end: 20151027
  34. GODEX [Concomitant]
     Indication: DISEASE COMPLICATION
     Route: 048
     Dates: start: 20150922, end: 20150922
  35. AMIKACIN SULFATE. [Concomitant]
     Active Substance: AMIKACIN SULFATE
     Route: 042
     Dates: start: 20150924, end: 20150924
  36. SANCUSO [Concomitant]
     Active Substance: GRANISETRON
     Indication: PROPHYLAXIS
     Route: 062
     Dates: start: 20151010, end: 20151010
  37. NORZYME [Concomitant]
     Indication: PROPHYLAXIS
     Route: 048
     Dates: start: 20150921, end: 20150921
  38. PENIRAMIN [Concomitant]
     Indication: PROPHYLAXIS
     Route: 042
     Dates: start: 20150922, end: 20150922
  39. NORMAL SALINE [Concomitant]
     Active Substance: SODIUM CHLORIDE
     Indication: NAUSEA
     Route: 042
     Dates: start: 20150923, end: 20151002
  40. GEMCITABINE [Suspect]
     Active Substance: GEMCITABINE\GEMCITABINE HYDROCHLORIDE
     Indication: CHOLANGIOCARCINOMA
     Route: 042
     Dates: start: 20151001, end: 20151001
  41. TARGIN [Concomitant]
     Active Substance: NALOXONE HYDROCHLORIDE\OXYCODONE HYDROCHLORIDE
     Route: 048
     Dates: start: 20151025
  42. ONSERAN [Concomitant]
     Indication: PROPHYLAXIS
     Route: 048
     Dates: start: 20151010, end: 20151012
  43. URSA [Concomitant]
     Indication: DISEASE COMPLICATION
     Route: 048
     Dates: start: 20150918, end: 20151020
  44. MEPERIDINE [Concomitant]
     Active Substance: MEPERIDINE
     Route: 030
     Dates: start: 20150921, end: 20150921
  45. NORMAL SALINE [Concomitant]
     Active Substance: SODIUM CHLORIDE
     Indication: CHOLANGITIS
     Route: 042
     Dates: start: 20150920, end: 20150923
  46. NORMAL SALINE [Concomitant]
     Active Substance: SODIUM CHLORIDE
     Indication: DISEASE COMPLICATION
     Route: 042
     Dates: start: 20150923, end: 20150923
  47. NORMAL SALINE [Concomitant]
     Active Substance: SODIUM CHLORIDE
     Route: 042
     Dates: start: 20150924, end: 20150924
  48. NORMAL SALINE [Concomitant]
     Active Substance: SODIUM CHLORIDE
     Route: 042
     Dates: start: 20150925, end: 20150930
  49. CISPLATIN. [Suspect]
     Active Substance: CISPLATIN
     Route: 042
     Dates: start: 20151010, end: 20151010
  50. TARGIN [Concomitant]
     Active Substance: NALOXONE HYDROCHLORIDE\OXYCODONE HYDROCHLORIDE
     Route: 048
     Dates: start: 20150925, end: 20150925
  51. ENCOVER [Concomitant]
     Indication: PROPHYLAXIS
     Route: 048
     Dates: start: 20151002, end: 20151007
  52. GODEX [Concomitant]
     Route: 048
     Dates: start: 20150923, end: 20151020
  53. XYZAL [Concomitant]
     Active Substance: LEVOCETIRIZINE DIHYDROCHLORIDE
     Indication: PROPHYLAXIS
     Route: 048
     Dates: start: 20150923, end: 20151020
  54. OXYCODONE HYDROCHLORIDE. [Concomitant]
     Active Substance: OXYCODONE HYDROCHLORIDE
     Route: 048
     Dates: start: 20150927, end: 20150927
  55. NASERON [Concomitant]
     Indication: PROPHYLAXIS
     Route: 042
     Dates: start: 20151001, end: 20151001
  56. HEPA-MERZ [Concomitant]
     Indication: PRODUCT USED FOR UNKNOWN INDICATION
     Route: 042
     Dates: start: 20151020, end: 20151024
  57. CURAN [Concomitant]
     Indication: NAUSEA
     Route: 042
     Dates: start: 20151004, end: 20151004
  58. NORMAL SALINE [Concomitant]
     Active Substance: SODIUM CHLORIDE
     Route: 042
     Dates: start: 20150924, end: 20150924
  59. MYPOL [Concomitant]
     Indication: DISEASE COMPLICATION
     Route: 048
     Dates: start: 20150915, end: 20151001
  60. MEGACE F [Concomitant]
     Route: 048
     Dates: start: 20151022
  61. LAMINA-G [Concomitant]
     Route: 048
     Dates: start: 20151022
  62. LANSTON [Concomitant]
     Active Substance: LANSOPRAZOLE
     Indication: PROPHYLAXIS
     Route: 048
     Dates: start: 20150915, end: 20151020
  63. TRESTAN [Concomitant]
     Route: 048
     Dates: start: 20150924, end: 20150924
  64. FENTANYL CITRATE. [Concomitant]
     Active Substance: FENTANYL CITRATE
     Indication: DISEASE COMPLICATION
     Route: 048
     Dates: start: 20150927, end: 20150929
  65. FENTANYL CITRATE. [Concomitant]
     Active Substance: FENTANYL CITRATE
     Route: 048
     Dates: start: 20151002, end: 20151020
  66. HARTMANN^S SOLUTION [Concomitant]
     Active Substance: CALCIUM CHLORIDE\POTASSIUM CHLORIDE\SODIUM CHLORIDE\SODIUM LACTATE
     Indication: PROPHYLAXIS
     Route: 042
     Dates: start: 20151001, end: 20151001
  67. MACPERAN [Concomitant]
     Indication: VOMITING
     Route: 042
     Dates: start: 20151001, end: 20151001
  68. MACPERAN [Concomitant]
     Route: 042
     Dates: start: 20151004, end: 20151004
  69. MACPERAN [Concomitant]
     Route: 042
     Dates: start: 20151004, end: 20151008
  70. URSA [Concomitant]
     Route: 048
     Dates: start: 20151022
  71. MEROPEN [Concomitant]
     Active Substance: MEROPENEM
     Indication: CHOLANGITIS
     Route: 042
     Dates: start: 20150923, end: 20150923
  72. TARGIN [Concomitant]
     Active Substance: NALOXONE HYDROCHLORIDE\OXYCODONE HYDROCHLORIDE
     Indication: DISEASE COMPLICATION
     Route: 048
     Dates: start: 20150922, end: 20150923
  73. TYLENOL ER [Concomitant]
     Active Substance: ACETAMINOPHEN
     Indication: PROPHYLAXIS
     Route: 048
     Dates: start: 20151002, end: 20151011
  74. LAMINA-G [Concomitant]
     Indication: PROPHYLAXIS
     Route: 048
     Dates: start: 20150916, end: 20151020
  75. LANSTON [Concomitant]
     Active Substance: LANSOPRAZOLE
     Route: 048
     Dates: start: 20151022
  76. FENTANYL CITRATE. [Concomitant]
     Active Substance: FENTANYL CITRATE
     Route: 048
     Dates: start: 20150923
  77. NORZYME [Concomitant]
     Route: 048
     Dates: start: 20151024, end: 20151024
  78. NASERON [Concomitant]
     Route: 042
     Dates: start: 20151010, end: 20151010
  79. MEPERIDINE [Concomitant]
     Active Substance: MEPERIDINE
     Route: 030
     Dates: start: 20150921, end: 20150922
  80. MEROPEN [Concomitant]
     Active Substance: MEROPENEM
     Route: 042
     Dates: start: 20150924, end: 20150924
  81. NORMAL SALINE [Concomitant]
     Active Substance: SODIUM CHLORIDE
     Route: 042
     Dates: start: 20151004, end: 20151004

REACTIONS (1)
  - Cholangitis [Recovered/Resolved]

NARRATIVE: CASE EVENT DATE: 20151020
